FAERS Safety Report 14213163 (Version 1)
Quarter: 2017Q4

REPORT INFORMATION
  Report Type: Report from Study
  Country: US (occurrence: US)
  Receive Date: 20171122
  Receipt Date: 20171122
  Transmission Date: 20180321
  Serious: No
  Sender: FDA-Public Use
  Company Number: US-PRINSTON PHARMACEUTICAL INC.-2016PRN00317

PATIENT
  Age: 63 Year
  Sex: Female
  Weight: 100.68 kg

DRUGS (2)
  1. CLORAZEPATE [Concomitant]
     Active Substance: CLORAZEPATE DIPOTASSIUM
     Dosage: UNK
     Dates: start: 1986
  2. IRBESARTAN. [Suspect]
     Active Substance: IRBESARTAN
     Indication: HYPERTENSION
     Dosage: 150 MG, 2X/DAY
     Route: 048
     Dates: start: 20161024, end: 20161029

REACTIONS (6)
  - Product substitution issue [Recovered/Resolved]
  - Feeling abnormal [Recovered/Resolved]
  - Chest pain [Recovered/Resolved]
  - Somnolence [Recovered/Resolved]
  - Dizziness [Recovered/Resolved]
  - Sensory disturbance [Recovered/Resolved]

NARRATIVE: CASE EVENT DATE: 201610
